FAERS Safety Report 4524567-8 (Version None)
Quarter: 2004Q4

REPORT INFORMATION
  Report Type: 
  Country: None (occurrence: None)
  Receive Date: 20041117
  Receipt Date: 20040517
  Transmission Date: 20050328
  Serious: Yes (Hospitalization)
  Sender: FDA-Public Use
  Company Number: US-JNJFOC-20040304959

PATIENT
  Age: 76 Year
  Sex: Male

DRUGS (1)
  1. LEVAQUIN [Suspect]
     Indication: PNEUMONIA
     Dosage: 500 MG, ORAL
     Route: 048
     Dates: start: 20040225, end: 20040229

REACTIONS (4)
  - DIZZINESS [None]
  - EPISTAXIS [None]
  - PULMONARY EMBOLISM [None]
  - TENDON RUPTURE [None]
